APPROVED DRUG PRODUCT: CAPRELSA
Active Ingredient: VANDETANIB
Strength: 300MG
Dosage Form/Route: TABLET;ORAL
Application: N022405 | Product #002
Applicant: GENZYME CORP
Approved: Apr 6, 2011 | RLD: Yes | RS: Yes | Type: RX

PATENTS:
Patent 8067427 | Expires: Aug 8, 2028